FAERS Safety Report 17016752 (Version 1)
Quarter: 2019Q4

REPORT INFORMATION
  Report Type: Spontaneous
  Country: US (occurrence: US)
  Receive Date: 20191111
  Receipt Date: 20191111
  Transmission Date: 20200122
  Serious: Yes (Other)
  Sender: FDA-Public Use
  Company Number: US-CHIESI USA, INC.-US-2019CHI000421

PATIENT

DRUGS (1)
  1. CUROSURF [Suspect]
     Active Substance: PORACTANT ALFA
     Indication: PRODUCT USED FOR UNKNOWN INDICATION
     Dosage: UNK
     Route: 065
     Dates: start: 20191028

REACTIONS (2)
  - Ill-defined disorder [Unknown]
  - Product administration error [Unknown]

NARRATIVE: CASE EVENT DATE: 20191028
